FAERS Safety Report 10509276 (Version 1)
Quarter: 2014Q3

REPORT INFORMATION
  Report Type: Spontaneous
  Country: US (occurrence: None)
  Receive Date: 20140915
  Receipt Date: 20140915
  Transmission Date: 20150326
  Serious: Yes (Other)
  Sender: FDA-Public Use
  Company Number: 2014-US-003440

PATIENT
  Age: 72 Year
  Sex: Male

DRUGS (19)
  1. TIOTROPIUM BROMIDE (TIOTROPIUM BROMIDE) [Concomitant]
     Active Substance: TIOTROPIUM BROMIDE
  2. PRAVASTATIN (PRAVASTATIN SODIUM) [Concomitant]
  3. XYREM [Suspect]
     Active Substance: SODIUM OXYBATE
     Indication: NARCOLEPSY
     Route: 048
     Dates: start: 201401, end: 2014
  4. RANITIDINE HYDROCHLORIDE (RANITIDINE HYDROCHLORIDE) [Concomitant]
  5. SPIRONOLACTONE (SPIRONOLACTONE) [Concomitant]
     Active Substance: SPIRONOLACTONE
  6. AMLODIPINE (AMLODIPINE BESILATE) [Concomitant]
  7. IBUPROFEN (IBUPROFEN) [Concomitant]
     Active Substance: IBUPROFEN
  8. HYDRALAZINE (HYDRALAZINE HYDROCHLORIDE) [Concomitant]
  9. TROSPIUM CHLORIDE (TROSPIUM CHLORIDE) [Concomitant]
  10. PRAMIPEXOLE (PRAMIPEXOLE DIHYDROCHLORIDE) [Concomitant]
  11. OMEPRAZOLE (OMEPRAZOLE) [Concomitant]
     Active Substance: OMEPRAZOLE
  12. MODAFINIL (MODAFINIL) [Concomitant]
     Active Substance: MODAFINIL
  13. FENOFIBRATE (FENOFIBRATE) [Concomitant]
  14. VENLAFAXINE [Concomitant]
     Active Substance: VENLAFAXINE HYDROCHLORIDE
  15. ANDRODERM (TESTOSTERONE) [Concomitant]
  16. ATENOLOL (ATENOLOL) [Concomitant]
     Active Substance: ATENOLOL
  17. FUROSEMIDE (FUROSEMIDE) [Concomitant]
     Active Substance: FUROSEMIDE
  18. FLUTICASONE [Concomitant]
     Active Substance: FLUTICASONE\FLUTICASONE PROPIONATE
  19. HYDROCOCONE/PARACETAMOL (HYDROCODONE BITARTRATE, PARACETAMOL) [Concomitant]

REACTIONS (1)
  - Loss of consciousness [None]

NARRATIVE: CASE EVENT DATE: 20140308
